FAERS Safety Report 24258630 (Version 9)
Quarter: 2025Q4

REPORT INFORMATION
  Report Type: Spontaneous
  Country: US (occurrence: US)
  Receive Date: 20240828
  Receipt Date: 20251013
  Transmission Date: 20260118
  Serious: Yes (Other)
  Sender: PFIZER
  Company Number: US-PFIZER INC-2020231708

PATIENT
  Age: 70 Year
  Sex: Female
  Weight: 70.31 kg

DRUGS (9)
  1. IBRANCE [Suspect]
     Active Substance: PALBOCICLIB
     Indication: Breast cancer female
     Dosage: 125 MG, 1X/DAY (125MG TABLET ONCE A DAY BY MOUTH)
     Route: 048
     Dates: start: 2019
  2. IBRANCE [Suspect]
     Active Substance: PALBOCICLIB
     Indication: Rheumatoid arthritis
     Dosage: 125 MG, CYCLIC, 1 TABLET DAILY FOR 21 DAYS 7 DAYS OFF
     Route: 048
  3. IBRANCE [Suspect]
     Active Substance: PALBOCICLIB
     Dosage: UNK
  4. IBRANCE [Suspect]
     Active Substance: PALBOCICLIB
     Dosage: 125 MG, CYCLIC, 1 TABLET DAILY FOR 21 DAYS 7 DAYS OFF
     Route: 048
  5. EXTAVIA [Suspect]
     Active Substance: INTERFERON BETA-1B
     Dosage: UNK
  6. LETROZOLE [Concomitant]
     Active Substance: LETROZOLE
     Indication: Breast cancer metastatic
     Dosage: 2.5MG TABLET EVERY NIGHT BY MOUTH (TAKING FOR ALMOST 6 YEARS, IT WILL BE 6 YEARS IN OCT2025)
     Route: 048
  7. XGEVA [Concomitant]
     Active Substance: DENOSUMAB
     Dosage: UNK
  8. VALSARTAN [Concomitant]
     Active Substance: VALSARTAN
     Indication: Hypertension
     Dosage: 90 MG, DAILY
     Route: 048
     Dates: start: 202411
  9. VALSARTAN [Concomitant]
     Active Substance: VALSARTAN
     Dosage: 180 MG, 1X/DAY
     Route: 048
     Dates: start: 202505

REACTIONS (28)
  - Osteonecrosis of jaw [Unknown]
  - Neutrophil count decreased [Unknown]
  - Cataract [Unknown]
  - Immunodeficiency [Unknown]
  - Type 2 diabetes mellitus [Unknown]
  - Catheterisation cardiac [Unknown]
  - Metastases to spine [Unknown]
  - White blood cell count decreased [Recovering/Resolving]
  - Osteomyelitis [Unknown]
  - Rheumatoid arthritis [Unknown]
  - Asthenia [Not Recovered/Not Resolved]
  - Somnolence [Unknown]
  - Fatigue [Unknown]
  - Infection [Unknown]
  - Electrocardiogram abnormal [Unknown]
  - Tumour marker decreased [Recovering/Resolving]
  - Back pain [Unknown]
  - Hypertension [Unknown]
  - Glycosylated haemoglobin increased [Unknown]
  - Glucose tolerance impaired [Unknown]
  - Blood glucose increased [Unknown]
  - Blood cholesterol increased [Unknown]
  - Cardiac disorder [Unknown]
  - Spinal stenosis [Unknown]
  - Pain in jaw [Unknown]
  - Stomatitis [Unknown]
  - Circumoral swelling [Unknown]
  - Dental caries [Unknown]

NARRATIVE: CASE EVENT DATE: 20190101
